FAERS Safety Report 7770585-6 (Version None)
Quarter: 2011Q3

REPORT INFORMATION
  Report Type: 
  Country: None (occurrence: None)
  Receive Date: 20110922
  Receipt Date: 20110915
  Transmission Date: 20111222
  Serious: Yes (Hospitalization)
  Sender: FDA-Public Use
  Company Number: PHHY2011CA70781

PATIENT
  Sex: Female

DRUGS (3)
  1. SANDOSTATIN LAR [Suspect]
     Indication: PANCREATIC FISTULA
     Dosage: 20 MG, EVERY 4 WEEKS
     Route: 030
     Dates: start: 20110212
  2. PANTOPRAZOLE SODIUM [Concomitant]
  3. TPN [Concomitant]

REACTIONS (2)
  - WOUND [None]
  - IMPAIRED HEALING [None]
